FAERS Safety Report 8831274 (Version 1)
Quarter: 2012Q4

REPORT INFORMATION
  Report Type: 
  Country: DE (occurrence: DE)
  Receive Date: 20121009
  Receipt Date: 20121009
  Transmission Date: 20130627
  Serious: Yes (Hospitalization, Congenital Anomaly)
  Sender: FDA-Public Use
  Company Number: DE-MYLANLABS-2012S1020033

PATIENT
  Age: 0 Year
  Sex: Male
  Weight: 3.48 kg

DRUGS (4)
  1. DOXEPIN [Suspect]
     Dosage: 125 [mg/d ]/ start date in December 2010, end date not known, at least until 21.02.2011
     Route: 064
  2. PAROXETIN [Suspect]
     Dosage: 60 [mg/d ]
     Route: 064
  3. CARBAMAZEPIN [Suspect]
     Dosage: 3 x 1 tablet, dosage not known, exact exposure times not given.
     Route: 064
  4. CLOMETHIAZOLE [Suspect]
     Dosage: if required. Exact exposure period not given.
     Route: 064

REACTIONS (5)
  - Exposure during pregnancy [Unknown]
  - Atrial septal defect [Unknown]
  - Ventricular septal defect [Unknown]
  - Neonatal respiratory distress syndrome [Recovered/Resolved]
  - Pulmonary valve stenosis congenital [Unknown]
